FAERS Safety Report 21411652 (Version 2)
Quarter: 2023Q1

REPORT INFORMATION
  Report Type: Spontaneous
  Country: US (occurrence: US)
  Receive Date: 20221005
  Receipt Date: 20230331
  Transmission Date: 20230417
  Serious: Yes (Other)
  Sender: FDA-Public Use
  Company Number: US-CHEMOCENTRYX, INC.-2022USCCXI0228

PATIENT

DRUGS (5)
  1. TAVNEOS [Suspect]
     Active Substance: AVACOPAN
     Indication: Product used for unknown indication
     Dosage: 30 MG, 2X/DAY WITH FOOD
     Route: 048
     Dates: start: 20220609
  2. TAVNEOS [Suspect]
     Active Substance: AVACOPAN
     Dosage: 30 MG, 2X/DAY WITH FOOD
     Route: 048
  3. AMLODIPINE [Suspect]
     Active Substance: AMLODIPINE BESYLATE
     Indication: Blood pressure abnormal
     Dosage: UNK
     Route: 065
     Dates: end: 2022
  4. UNSPECIFIED INGREDIENT [Suspect]
     Active Substance: UNSPECIFIED INGREDIENT
     Indication: Product used for unknown indication
     Dosage: UNK
     Route: 065
  5. PREDNISONE [Concomitant]
     Active Substance: PREDNISONE
     Indication: Product used for unknown indication
     Route: 065

REACTIONS (4)
  - Glaucoma [Not Recovered/Not Resolved]
  - Blindness unilateral [Not Recovered/Not Resolved]
  - Immune system disorder [Not Recovered/Not Resolved]
  - Hypotension [Recovering/Resolving]

NARRATIVE: CASE EVENT DATE: 20220601
